FAERS Safety Report 7631988-3 (Version None)
Quarter: 2011Q3

REPORT INFORMATION
  Report Type: 
  Country: None (occurrence: None)
  Receive Date: 20110725
  Receipt Date: 20110519
  Transmission Date: 20111222
  Serious: No
  Sender: FDA-Public Use
  Company Number: US-BRISTOL-MYERS SQUIBB COMPANY-15760747

PATIENT
  Sex: Female

DRUGS (1)
  1. COUMADIN [Suspect]
     Dosage: 5MG-5DAYS A WEEK + 7.5MG-2DAYS A WEEK.

REACTIONS (1)
  - HEADACHE [None]
